FAERS Safety Report 10341212 (Version 1)
Quarter: 2014Q3

REPORT INFORMATION
  Report Type: Spontaneous
  Country: US (occurrence: US)
  Receive Date: 20140725
  Receipt Date: 20140725
  Transmission Date: 20150326
  Serious: No
  Sender: FDA-Public Use
  Company Number: US-ASTRAZENECA-2014SE51637

PATIENT
  Sex: Female

DRUGS (2)
  1. SEROQUEL [Suspect]
     Active Substance: QUETIAPINE FUMARATE
     Indication: BIPOLAR DISORDER
     Route: 048
     Dates: start: 1997, end: 201407
  2. SEROQUEL [Suspect]
     Active Substance: QUETIAPINE FUMARATE
     Indication: BIPOLAR DISORDER
     Route: 048

REACTIONS (3)
  - Therapy cessation [Unknown]
  - Insomnia [Not Recovered/Not Resolved]
  - Dyskinesia [Unknown]

NARRATIVE: CASE EVENT DATE: 201407
